FAERS Safety Report 4303718-4 (Version None)
Quarter: 2004Q1

REPORT INFORMATION
  Report Type: 
  Country: None (occurrence: None)
  Receive Date: 20040224
  Receipt Date: 20040224
  Transmission Date: 20041129
  Serious: Yes (Other)
  Sender: FDA-Public Use
  Company Number: None

PATIENT
  Age: 41 Year
  Sex: Male
  Weight: 117.4816 kg

DRUGS (10)
  1. TRAMADOL HCL [Suspect]
     Indication: NECK PAIN
     Dosage: 1-2 TABLET 4-6 HOURS ORAL
     Route: 048
     Dates: start: 20040218, end: 20040218
  2. METHADONE HCL [Concomitant]
  3. PRILOSEC [Concomitant]
  4. RANITIDINE [Concomitant]
  5. LANTUS [Concomitant]
  6. AMITRIPTYLINE HCL [Concomitant]
  7. LISINOPRIL [Concomitant]
  8. BEXTRA [Concomitant]
  9. METFORMIN [Concomitant]
  10. ZOCOR [Concomitant]

REACTIONS (2)
  - VISUAL ACUITY REDUCED [None]
  - VISUAL DISTURBANCE [None]
